FAERS Safety Report 8308766-5 (Version None)
Quarter: 2012Q2

REPORT INFORMATION
  Report Type: 
  Country: None (occurrence: None)
  Receive Date: 20120424
  Receipt Date: 20120413
  Transmission Date: 20120825
  Serious: Yes (Hospitalization)
  Sender: FDA-Public Use
  Company Number: FR-PFIZER INC-2012092231

PATIENT
  Age: 40 Year
  Sex: Female

DRUGS (3)
  1. TORISEL [Suspect]
     Indication: NEOPLASM
     Dosage: 20 MG, 1/7 DAYS
     Route: 042
     Dates: start: 20120221, end: 20120403
  2. ERBITUX [Suspect]
     Indication: NEOPLASM
     Dosage: 652 MG, UNK
     Route: 042
     Dates: start: 20120214, end: 20120214
  3. ERBITUX [Suspect]
     Dosage: 408 MG, 1/7 DAYS
     Dates: start: 20120221, end: 20120403

REACTIONS (2)
  - BLOOD CREATINE PHOSPHOKINASE INCREASED [None]
  - DIARRHOEA [None]
